FAERS Safety Report 16278360 (Version 1)
Quarter: 2019Q2

REPORT INFORMATION
  Report Type: Spontaneous
  Country: US (occurrence: US)
  Receive Date: 20190506
  Receipt Date: 20190506
  Transmission Date: 20190711
  Serious: Yes (Other)
  Sender: FDA-Public Use
  Company Number: US-ASTRAZENECA-2018SF65328

PATIENT
  Age: 29384 Day
  Sex: Female

DRUGS (10)
  1. NEXIUM 24HR [Suspect]
     Active Substance: ESOMEPRAZOLE MAGNESIUM
     Route: 048
  2. PRILOSEC [Suspect]
     Active Substance: OMEPRAZOLE MAGNESIUM
     Route: 048
  3. CELEBREX [Concomitant]
     Active Substance: CELECOXIB
  4. MELOXICAM. [Concomitant]
     Active Substance: MELOXICAM
  5. INDOMETHACIN. [Concomitant]
     Active Substance: INDOMETHACIN
  6. ALEVE [Concomitant]
     Active Substance: NAPROXEN SODIUM
  7. ASPIRIN. [Concomitant]
     Active Substance: ASPIRIN
  8. IBUPROFEN. [Concomitant]
     Active Substance: IBUPROFEN
  9. DICLOFENAC [Concomitant]
     Active Substance: DICLOFENAC
  10. PRILOSEC OTC [Suspect]
     Active Substance: OMEPRAZOLE MAGNESIUM
     Route: 048

REACTIONS (4)
  - Chronic kidney disease [Unknown]
  - Rebound acid hypersecretion [Unknown]
  - Renal failure [Unknown]
  - Renal injury [Unknown]

NARRATIVE: CASE EVENT DATE: 20160331
